FAERS Safety Report 16516555 (Version 1)
Quarter: 2019Q3

REPORT INFORMATION
  Report Type: Spontaneous
  Country: US (occurrence: US)
  Receive Date: 20190702
  Receipt Date: 20190702
  Transmission Date: 20191004
  Serious: No
  Sender: FDA-Public Use
  Company Number: US-GALDERMA-US19002896

PATIENT
  Age: 35 Year
  Sex: Female

DRUGS (8)
  1. PROACTIV MD ADAPALENE ACNE TREATMENT [Suspect]
     Active Substance: ADAPALENE
     Indication: ACNE
     Dosage: 0.1%
     Route: 061
     Dates: start: 20181023, end: 20181115
  2. PROACTIV CLEANSING BODY BAR [Concomitant]
     Active Substance: SALICYLIC ACID
     Indication: ACNE
     Route: 061
     Dates: start: 20181023, end: 20181115
  3. PROACTIV CLEANSING BODY BAR [Concomitant]
     Active Substance: SALICYLIC ACID
     Indication: SKIN DISCOLOURATION
  4. PROACTIV MD DAILY OIL CONTROL SPF 30 [Suspect]
     Active Substance: AVOBENZONE\OCTISALATE\OCTOCRYLENE
     Indication: ACNE
     Route: 061
     Dates: start: 20181023, end: 20181115
  5. PROACTIV MD DEEP CLEANSING FACE WASH [Concomitant]
     Active Substance: COSMETICS
     Indication: SKIN DISCOLOURATION
  6. PROACTIV MD DEEP CLEANSING FACE WASH [Concomitant]
     Active Substance: COSMETICS
     Indication: ACNE
     Route: 061
     Dates: start: 20181023, end: 20181115
  7. PROACTIV MD ADAPALENE ACNE TREATMENT [Suspect]
     Active Substance: ADAPALENE
     Indication: SKIN DISCOLOURATION
  8. PROACTIV MD DAILY OIL CONTROL SPF 30 [Suspect]
     Active Substance: AVOBENZONE\OCTISALATE\OCTOCRYLENE
     Indication: SKIN DISCOLOURATION

REACTIONS (3)
  - Acne cystic [Recovering/Resolving]
  - Acne [Recovering/Resolving]
  - Product use in unapproved indication [Recovering/Resolving]

NARRATIVE: CASE EVENT DATE: 20181030
